FAERS Safety Report 6734238-5 (Version None)
Quarter: 2010Q2

REPORT INFORMATION
  Report Type: 
  Country: None (occurrence: None)
  Receive Date: 20100520
  Receipt Date: 20100510
  Transmission Date: 20101027
  Serious: Yes (Other)
  Sender: FDA-Public Use
  Company Number: PHHY2010US28363

PATIENT
  Sex: Female

DRUGS (19)
  1. RECLAST [Suspect]
     Indication: OSTEOPOROSIS
     Dosage: 5 MG, INCE YEARLY
     Route: 042
     Dates: start: 20080130, end: 20100401
  2. RHINOCORT [Concomitant]
     Dosage: 32 UG, PRN
  3. DRISDOL [Concomitant]
     Dosage: 50000 U, QMO
  4. TRICOR [Concomitant]
     Indication: HYPERLIPIDAEMIA
     Dosage: 145 MG, QD
     Route: 048
  5. NORVASC [Concomitant]
     Indication: HYPERTENSION
     Dosage: 10 MG, QD
     Route: 048
  6. CRESTOR [Concomitant]
     Dosage: 5 MG, QD
     Route: 048
  7. LISINOPRIL [Concomitant]
     Dosage: 40 MG, QD
     Route: 048
  8. TOPROL-XL [Concomitant]
     Dosage: 100 MG, QD
  9. HYDROCHLOROTHIAZIDE [Concomitant]
     Dosage: 12.5 MG, QD
     Route: 048
  10. FLOVENT [Concomitant]
     Dosage: 110 UG, PRN DURING THE WINTER
  11. ALBUTEROL [Concomitant]
     Dosage: 90 UG, PRN
  12. VITAMIN C [Concomitant]
     Dosage: 500 MG, QD
  13. CENTRUM [Concomitant]
     Dosage: 1 DF, QD
     Route: 048
  14. CALCIUM CARBONATE W/VITAMIN D NOS [Concomitant]
     Dosage: 1 DF, BID
     Route: 048
  15. ACETAMINOPHEN [Concomitant]
     Dosage: 500 MG, 2 TABLETS EVERY 4-6 HOURS AS NEEDED
  16. ASPIRIN [Concomitant]
     Dosage: 81 MG, QD
     Route: 048
  17. PROPOXYPHENE NAPSYLATE [Concomitant]
     Indication: PAIN
     Dosage: AS NEEDED
  18. LIDODERM [Concomitant]
     Dosage: 5 % PATCH, DAILY ON BACK
     Route: 062
  19. METFORMIN ^COX^ [Concomitant]
     Indication: DIABETES MELLITUS
     Dosage: 500 MG DAILY
     Route: 048

REACTIONS (7)
  - FEELING ABNORMAL [None]
  - INFLUENZA LIKE ILLNESS [None]
  - MULTIPLE FRACTURES [None]
  - PAIN [None]
  - SCIATICA [None]
  - SPINAL DISORDER [None]
  - WEIGHT DECREASED [None]
